FAERS Safety Report 25760589 (Version 2)
Quarter: 2025Q3

REPORT INFORMATION
  Report Type: Spontaneous
  Country: US (occurrence: US)
  Receive Date: 20250904
  Receipt Date: 20250911
  Transmission Date: 20251020
  Serious: Yes (Other)
  Sender: PFIZER
  Company Number: US-PFIZER INC-202500174811

PATIENT
  Age: 72 Year
  Sex: Male

DRUGS (2)
  1. BUPIVACAINE HYDROCHLORIDE [Suspect]
     Active Substance: BUPIVACAINE HYDROCHLORIDE
     Indication: Local anaesthesia
  2. SODIUM METABISULFITE [Suspect]
     Active Substance: SODIUM METABISULFITE

REACTIONS (2)
  - Hypersensitivity [Recovered/Resolved]
  - Allergic reaction to excipient [Recovered/Resolved]
